FAERS Safety Report 8172015-1 (Version None)
Quarter: 2012Q1

REPORT INFORMATION
  Report Type: 
  Country: None (occurrence: None)
  Receive Date: 20120228
  Receipt Date: 20120216
  Transmission Date: 20120608
  Serious: Yes (Hospitalization)
  Sender: FDA-Public Use
  Company Number: AR-ROCHE-1042891

PATIENT
  Sex: Female

DRUGS (1)
  1. LUCENTIS [Suspect]
     Indication: RETINAL INJURY
     Route: 050
     Dates: start: 20110705

REACTIONS (6)
  - FALL [None]
  - HYPERTENSION [None]
  - VISION BLURRED [None]
  - VISUAL ACUITY REDUCED [None]
  - EYE PAIN [None]
  - VISUAL IMPAIRMENT [None]
